FAERS Safety Report 6663210-9 (Version None)
Quarter: 2010Q1

REPORT INFORMATION
  Report Type: 
  Country: None (occurrence: None)
  Receive Date: 20100331
  Receipt Date: 20100331
  Transmission Date: 20100710
  Serious: Yes (Life-Threatening, Hospitalization)
  Sender: FDA-Public Use
  Company Number: None

PATIENT
  Age: 15 Year
  Sex: Female
  Weight: 56.6996 kg

DRUGS (1)
  1. CORICIDIN [Suspect]
     Indication: DRUG ABUSE
     Dosage: EXCESSIVE RECREATIONALLY PO
     Route: 048
     Dates: start: 20090201, end: 20100329

REACTIONS (6)
  - CONVULSION [None]
  - DRUG ABUSER [None]
  - DRUG INTERACTION [None]
  - HEART RATE INCREASED [None]
  - LOSS OF CONSCIOUSNESS [None]
  - RESPIRATORY ARREST [None]
